FAERS Safety Report 7420613-2 (Version None)
Quarter: 2011Q2

REPORT INFORMATION
  Report Type: 
  Country: None (occurrence: None)
  Receive Date: 20110407
  Receipt Date: 20110329
  Transmission Date: 20111010
  Serious: Yes (Hospitalization, Other)
  Sender: FDA-Public Use
  Company Number: 1713747-2011-00005

PATIENT
  Sex: Female
  Weight: 75 kg

DRUGS (1)
  1. DELFLEX W/ DEXTROSE 2.5% [Suspect]
     Indication: RENAL FAILURE CHRONIC
     Dosage: INTRAPERITONEAL
     Route: 033
     Dates: start: 20110209

REACTIONS (6)
  - CONVULSION [None]
  - CLAVICLE FRACTURE [None]
  - SYNCOPE [None]
  - PRODUCT QUALITY ISSUE [None]
  - RIB FRACTURE [None]
  - FALL [None]
